FAERS Safety Report 8314868-X (Version None)
Quarter: 2012Q2

REPORT INFORMATION
  Report Type: 
  Country: None (occurrence: None)
  Receive Date: 20120426
  Receipt Date: 20120301
  Transmission Date: 20120825
  Serious: No
  Sender: FDA-Public Use
  Company Number: US-MYLANLABS-2012S1004825

PATIENT
  Age: 87 Year
  Sex: Female

DRUGS (4)
  1. TOPROL-XL [Concomitant]
     Indication: BLOOD PRESSURE
  2. CLONIDINE [Suspect]
     Indication: BLOOD PRESSURE INCREASED
     Dosage: QWEEK
     Route: 062
     Dates: start: 20110801
  3. PULMICORT [Concomitant]
     Indication: ASTHMA
  4. PRAVACHOL [Concomitant]
     Indication: LIPIDS INCREASED

REACTIONS (2)
  - HYPERTENSION [None]
  - DRUG INEFFECTIVE [None]
